FAERS Safety Report 6071945-4 (Version None)
Quarter: 2009Q1

REPORT INFORMATION
  Report Type: 
  Country: None (occurrence: None)
  Receive Date: 20090210
  Receipt Date: 20081126
  Transmission Date: 20090719
  Serious: Yes (Life-Threatening, Hospitalization, Other)
  Sender: FDA-Public Use
  Company Number: JP-ABBOTT-09P-087-0502129-00

PATIENT
  Age: 68 Year
  Sex: Male
  Weight: 77.5 kg

DRUGS (3)
  1. CLARITHROMYCIN [Suspect]
     Indication: INFECTION
     Route: 048
     Dates: start: 20081024
  2. LOXONIN [Concomitant]
     Indication: PYREXIA
     Route: 048
     Dates: start: 20081024
  3. VOLTAREN [Concomitant]
     Indication: PYREXIA
     Route: 054
     Dates: start: 20081026

REACTIONS (5)
  - DELIRIUM [None]
  - DISSEMINATED INTRAVASCULAR COAGULATION [None]
  - MULTI-ORGAN FAILURE [None]
  - SHOCK [None]
  - STEVENS-JOHNSON SYNDROME [None]
